FAERS Safety Report 18962717 (Version 1)
Quarter: 2021Q1

REPORT INFORMATION
  Report Type: Spontaneous
  Country: US (occurrence: US)
  Receive Date: 20210303
  Receipt Date: 20210303
  Transmission Date: 20210420
  Serious: Yes (Death)
  Sender: FDA-Public Use
  Company Number: None

PATIENT
  Age: 73 Year
  Sex: Male
  Weight: 42.75 kg

DRUGS (11)
  1. CAPECITABINE. [Suspect]
     Active Substance: CAPECITABINE
     Indication: BREAST CANCER FEMALE
     Route: 048
     Dates: start: 20201003, end: 20210224
  2. ALLOPURINOL 100MG [Concomitant]
     Active Substance: ALLOPURINOL
  3. ASPIRIN 81MG [Concomitant]
     Active Substance: ASPIRIN
  4. CARVEDILOL. [Concomitant]
     Active Substance: CARVEDILOL
  5. CIPROFLOXACIN. [Concomitant]
     Active Substance: CIPROFLOXACIN
  6. ATORVASTATIN 80MG [Concomitant]
     Active Substance: ATORVASTATIN
  7. ALENDRONATE 70MG [Concomitant]
     Active Substance: ALENDRONATE SODIUM
  8. METFORMIN [Concomitant]
     Active Substance: METFORMIN HYDROCHLORIDE
  9. AMLODIPINE [Concomitant]
     Active Substance: AMLODIPINE BESYLATE
  10. GLIPIZIDE. [Concomitant]
     Active Substance: GLIPIZIDE
  11. GABAPENTIN. [Concomitant]
     Active Substance: GABAPENTIN

REACTIONS (1)
  - Death [None]

NARRATIVE: CASE EVENT DATE: 20210224
